FAERS Safety Report 15117252 (Version 3)
Quarter: 2020Q2

REPORT INFORMATION
  Report Type: Spontaneous
  Country: CA (occurrence: CA)
  Receive Date: 20180706
  Receipt Date: 20200504
  Transmission Date: 20200713
  Serious: Yes (Death, Hospitalization, Other)
  Sender: FDA-Public Use
  Company Number: CA-UCBSA-2018028777

PATIENT
  Age: 78 Year
  Sex: Female

DRUGS (11)
  1. TELMISARTAN. [Concomitant]
     Active Substance: TELMISARTAN
     Indication: PRODUCT USED FOR UNKNOWN INDICATION
     Dosage: UNK
     Dates: end: 20130101
  2. DIAMICRON [Concomitant]
     Active Substance: GLICLAZIDE
     Indication: PRODUCT USED FOR UNKNOWN INDICATION
     Dosage: 80 MG, 2X/DAY (BID)
     Route: 048
     Dates: end: 20130101
  3. KEPPRA [Suspect]
     Active Substance: LEVETIRACETAM
     Dosage: 500 MG, 2X/DAY (BID)
     Route: 042
     Dates: start: 20180217, end: 20180221
  4. JANUVIA [Concomitant]
     Active Substance: SITAGLIPTIN PHOSPHATE
     Indication: PRODUCT USED FOR UNKNOWN INDICATION
     Dosage: DAILY DOSE OF 25 MG
     Route: 048
     Dates: end: 20130101
  5. EZETROL [Concomitant]
     Active Substance: EZETIMIBE
     Indication: PRODUCT USED FOR UNKNOWN INDICATION
     Dosage: 10 MG
     Route: 048
     Dates: end: 20130101
  6. KEPPRA [Suspect]
     Active Substance: LEVETIRACETAM
     Indication: SEIZURE
     Dosage: 500 MG, TWICE DAILY AT BED TIME (500MG/5 ML)
     Route: 042
     Dates: start: 20180118, end: 20180216
  7. KEPPRA [Suspect]
     Active Substance: LEVETIRACETAM
     Indication: SEIZURE
     Dosage: 750 MG, 2X/DAY (BID)
     Route: 048
  8. DILANTIN [Concomitant]
     Active Substance: PHENYTOIN
     Indication: PRODUCT USED FOR UNKNOWN INDICATION
     Dosage: 200 MG, ONCE DAILY (QD)
     Route: 042
     Dates: end: 20130101
  9. SYNTHROID [Concomitant]
     Active Substance: LEVOTHYROXINE SODIUM
     Indication: PRODUCT USED FOR UNKNOWN INDICATION
     Dosage: DAILY DOSE 75 MCG
     Route: 048
     Dates: end: 20130101
  10. LIPITOR [Concomitant]
     Active Substance: ATORVASTATIN CALCIUM
     Indication: PRODUCT USED FOR UNKNOWN INDICATION
     Dosage: 40 MG, AT BED TIME
     Route: 048
     Dates: end: 20130101
  11. GLUMETZA [Concomitant]
     Active Substance: METFORMIN HYDROCHLORIDE
     Indication: PRODUCT USED FOR UNKNOWN INDICATION
     Dosage: 1000 MG, 2X/DAY (BID)
     Route: 048
     Dates: end: 20130101

REACTIONS (36)
  - Meningitis [Unknown]
  - Haemoglobin decreased [Unknown]
  - Hiatus hernia [Unknown]
  - Impaired gastric emptying [Unknown]
  - Hypotension [Recovered/Resolved]
  - Renal failure [Recovering/Resolving]
  - Granuloma [Unknown]
  - Haemoptysis [Unknown]
  - Faeces discoloured [Unknown]
  - Septic shock [Unknown]
  - Systemic candida [Unknown]
  - Gastric mucosal hypertrophy [Unknown]
  - Nausea [Not Recovered/Not Resolved]
  - Ulcer [Unknown]
  - Staphylococcal bacteraemia [Unknown]
  - Thrombocytopenia [Unknown]
  - Respiratory failure [Fatal]
  - Coma [Not Recovered/Not Resolved]
  - Venous thrombosis [Unknown]
  - Sinus tachycardia [Unknown]
  - Blood glucose increased [Unknown]
  - Red blood cell count increased [Unknown]
  - Red blood cell sedimentation rate increased [Unknown]
  - C-reactive protein increased [Unknown]
  - Diarrhoea [Recovered/Resolved]
  - Oliguria [Unknown]
  - Haematemesis [Unknown]
  - Pyrexia [Unknown]
  - White blood cell count increased [Unknown]
  - Sepsis [Unknown]
  - Depressed level of consciousness [Unknown]
  - Upper gastrointestinal haemorrhage [Recovered/Resolved]
  - Multiple organ dysfunction syndrome [Fatal]
  - Erosive oesophagitis [Unknown]
  - Hyperglycaemia [Recovering/Resolving]
  - Vomiting [Not Recovered/Not Resolved]
